FAERS Safety Report 6062502-4 (Version None)
Quarter: 2009Q1

REPORT INFORMATION
  Report Type: 
  Country: None (occurrence: None)
  Receive Date: 20090202
  Receipt Date: 20090202
  Transmission Date: 20090719
  Serious: Yes (Other)
  Sender: FDA-Public Use
  Company Number: None

PATIENT
  Age: 41 Year
  Sex: Female
  Weight: 81.6475 kg

DRUGS (2)
  1. EFFEXOR XR [Suspect]
     Indication: ANXIETY
     Dosage: 75MG DAILY
     Dates: start: 20090120, end: 20090201
  2. EFFEXOR XR [Suspect]
     Indication: DEPRESSION
     Dosage: 75MG DAILY
     Dates: start: 20090120, end: 20090201

REACTIONS (7)
  - AGGRESSION [None]
  - ANGER [None]
  - DIZZINESS [None]
  - HEADACHE [None]
  - IRRITABILITY [None]
  - MALAISE [None]
  - MOOD ALTERED [None]
